FAERS Safety Report 5171240-1 (Version None)
Quarter: 2006Q4

REPORT INFORMATION
  Report Type: 
  Country: None (occurrence: None)
  Receive Date: 20061213
  Receipt Date: 20060626
  Transmission Date: 20070319
  Serious: Yes (Hospitalization, Other)
  Sender: FDA-Public Use
  Company Number: US-AMGEN-STX184668

PATIENT
  Sex: Female

DRUGS (1)
  1. ENBREL [Suspect]
     Indication: RHEUMATOID ARTHRITIS
     Route: 058
     Dates: start: 19990601

REACTIONS (4)
  - ARTHRALGIA [None]
  - ARTHRITIS BACTERIAL [None]
  - CONDITION AGGRAVATED [None]
  - PULMONARY EMBOLISM [None]
